FAERS Safety Report 7318052-8 (Version None)
Quarter: 2011Q1

REPORT INFORMATION
  Report Type: 
  Country: None (occurrence: None)
  Receive Date: 20110228
  Receipt Date: 20110218
  Transmission Date: 20110831
  Serious: Yes (Hospitalization)
  Sender: FDA-Public Use
  Company Number: US-BIOGENIDEC-2010BI039265

PATIENT
  Age: 47 Year
  Sex: Female
  Weight: 49 kg

DRUGS (13)
  1. OXYCODONE [Concomitant]
     Indication: PAIN
     Route: 048
  2. TYSABRI [Suspect]
     Route: 042
     Dates: start: 20081121, end: 20101028
  3. PHENERGAN [Concomitant]
     Indication: NAUSEA
     Route: 048
  4. TYSABRI [Suspect]
     Route: 042
     Dates: start: 20110101
  5. PREDNISONE [Concomitant]
     Indication: TREMOR
     Route: 048
  6. BELLAMINE [Concomitant]
     Indication: CROHN'S DISEASE
     Route: 048
  7. DIAZEPAM [Concomitant]
     Indication: MUSCLE TIGHTNESS
     Route: 048
  8. EFFEXOR [Concomitant]
     Indication: DEPRESSION
     Route: 048
  9. OXYBUTYNIN [Concomitant]
     Indication: HYPERTONIC BLADDER
     Route: 048
  10. NEXIUM [Concomitant]
     Indication: GASTROOESOPHAGEAL REFLUX DISEASE
     Route: 048
  11. TYSABRI [Suspect]
     Indication: MULTIPLE SCLEROSIS
     Route: 042
     Dates: start: 20070614, end: 20080811
  12. ZANTAC [Concomitant]
     Indication: GASTROOESOPHAGEAL REFLUX DISEASE
     Route: 048
  13. TYLENOL [Concomitant]

REACTIONS (7)
  - FALL [None]
  - INTERVERTEBRAL DISC PROTRUSION [None]
  - BLOOD ELECTROLYTES INCREASED [None]
  - GAIT DISTURBANCE [None]
  - HEPATIC ENCEPHALOPATHY [None]
  - ACCIDENTAL OVERDOSE [None]
  - MULTIPLE SCLEROSIS RELAPSE [None]
